FAERS Safety Report 16850244 (Version 2)
Quarter: 2021Q1

REPORT INFORMATION
  Report Type: Spontaneous
  Country: US (occurrence: US)
  Receive Date: 20190925
  Receipt Date: 20210125
  Transmission Date: 20210419
  Serious: No
  Sender: FDA-Public Use
  Company Number: US-SHIRE-US201931332

PATIENT
  Sex: Female
  Weight: 33.11 kg

DRUGS (11)
  1. CINRYZE [Suspect]
     Active Substance: HUMAN C1-ESTERASE INHIBITOR
     Dosage: 500 INTERNATIONAL UNIT, EVERY 3 DAYS
     Route: 042
     Dates: start: 20180927
  2. CINRYZE [Suspect]
     Active Substance: HUMAN C1-ESTERASE INHIBITOR
     Dosage: 500 INTERNATIONAL UNIT, EVERY 3 DAYS
     Route: 042
     Dates: start: 20180927
  3. MULTIVITAMINS [VITAMINS NOS] [Concomitant]
     Active Substance: VITAMINS
     Route: 065
  4. CINRYZE [Suspect]
     Active Substance: HUMAN C1-ESTERASE INHIBITOR
     Indication: IMMUNE SYSTEM DISORDER
     Dosage: 500 INTERNATIONAL UNIT, EVERY 3 DAYS
     Route: 042
     Dates: start: 20190815
  5. CINRYZE [Suspect]
     Active Substance: HUMAN C1-ESTERASE INHIBITOR
     Dosage: 500 INTERNATIONAL UNIT, EVERY 3 DAYS
     Route: 042
     Dates: start: 20180927
  6. ELDERBERRY [SAMBUCUS NIGRA] [Concomitant]
     Route: 065
  7. CINRYZE [Suspect]
     Active Substance: HUMAN C1-ESTERASE INHIBITOR
     Indication: IMMUNE SYSTEM DISORDER
     Dosage: 500 INTERNATIONAL UNIT, EVERY 3 DAYS
     Route: 042
     Dates: start: 20190815
  8. EPINEPHRINE. [Concomitant]
     Active Substance: EPINEPHRINE
     Route: 065
  9. STERILE WATER [Concomitant]
     Active Substance: WATER
     Route: 065
  10. CINRYZE [Suspect]
     Active Substance: HUMAN C1-ESTERASE INHIBITOR
     Indication: IMMUNE SYSTEM DISORDER
     Dosage: 500 INTERNATIONAL UNIT, EVERY 3 DAYS
     Route: 042
     Dates: start: 20190815
  11. SODIUM CHLORIDE. [Concomitant]
     Active Substance: SODIUM CHLORIDE
     Route: 065

REACTIONS (3)
  - Infusion site pain [Recovered/Resolved]
  - COVID-19 [Unknown]
  - Lacrimation increased [Recovered/Resolved]
